FAERS Safety Report 19715515 (Version 1)
Quarter: 2021Q3

REPORT INFORMATION
  Report Type: Spontaneous
  Country: US (occurrence: US)
  Receive Date: 20210818
  Receipt Date: 20210818
  Transmission Date: 20211014
  Serious: No
  Sender: FDA-Public Use
  Company Number: US-GLAXOSMITHKLINE-US2021AMR169838

PATIENT
  Sex: Female

DRUGS (2)
  1. MELATONIN [Suspect]
     Active Substance: MELATONIN
     Indication: INSOMNIA
     Dosage: UNK
  2. ROPINIROLE HYDROCHLORIDE. [Suspect]
     Active Substance: ROPINIROLE HYDROCHLORIDE
     Indication: RESTLESS LEGS SYNDROME
     Dosage: 1 MG
     Dates: start: 2019

REACTIONS (6)
  - Paraesthesia [Recovering/Resolving]
  - Drug interaction [Recovered/Resolved]
  - Middle insomnia [Recovering/Resolving]
  - Dyskinesia [Unknown]
  - Pruritus [Unknown]
  - Muscle spasms [Recovering/Resolving]
